FAERS Safety Report 23726750 (Version 2)
Quarter: 2024Q2

REPORT INFORMATION
  Report Type: Spontaneous
  Country: FR (occurrence: FR)
  Receive Date: 20240410
  Receipt Date: 20240419
  Transmission Date: 20240716
  Serious: Yes (Hospitalization)
  Sender: FDA-Public Use
  Company Number: FR-AFSSAPS-CN2024000064

PATIENT
  Age: 55 Year
  Sex: Male
  Weight: 71 kg

DRUGS (13)
  1. PANTOPRAZOLE [Suspect]
     Active Substance: PANTOPRAZOLE
     Indication: Haematemesis
     Dosage: 80 MILLIGRAM OVER 24 HOURS, IN TOTAL
     Route: 040
     Dates: start: 20230913, end: 20230914
  2. ESOMEPRAZOLE [Suspect]
     Active Substance: ESOMEPRAZOLE
     Indication: Barrett^s oesophagus
     Dosage: 40 MILLIGRAM, DAILY, EVERY EVENING
     Route: 048
     Dates: start: 20231029, end: 20231212
  3. ESOMEPRAZOLE [Suspect]
     Active Substance: ESOMEPRAZOLE
     Dosage: 20 MILLIGRAM, DAILY, EVERY EVENING
     Route: 048
     Dates: start: 20231212, end: 20231230
  4. OMEPRAZOLE [Suspect]
     Active Substance: OMEPRAZOLE
     Indication: Gastric ulcer perforation
     Dosage: 20 MILLIGRAM, DAILY
     Route: 048
     Dates: start: 2019, end: 202212
  5. LANSOPRAZOLE [Suspect]
     Active Substance: LANSOPRAZOLE
     Indication: Barrett^s oesophagus
     Dosage: 30 MILLIGRAM, BID, EVERY DAY
     Route: 048
     Dates: start: 20230914, end: 20231009
  6. LANSOPRAZOLE [Suspect]
     Active Substance: LANSOPRAZOLE
     Dosage: 30 MILLIGRAM, DAILY
     Route: 048
     Dates: start: 20231009, end: 20231029
  7. LANSOPRAZOLE [Suspect]
     Active Substance: LANSOPRAZOLE
     Dosage: 15 MILLIGRAM, DAILY, EVERY DAY
     Route: 048
     Dates: start: 202212, end: 20230913
  8. MONTELUKAST [Concomitant]
     Active Substance: MONTELUKAST SODIUM
     Indication: Asthma
     Dosage: 10 MILLIGRAM, DAILY,  IN THE MORNING
     Route: 048
  9. AMLODIPINE [Concomitant]
     Active Substance: AMLODIPINE BESYLATE
     Indication: Hypertension
     Dosage: 10 MILLIGRAM, DAILY
     Route: 048
  10. RAMIPRIL [Concomitant]
     Active Substance: RAMIPRIL
     Indication: Hypertension
     Dosage: 5 MILLIGRAM, DAILY
     Route: 048
  11. ALBUTEROL [Concomitant]
     Active Substance: ALBUTEROL
     Indication: Asthma
     Dosage: 1 DOSAGE FORM, 1DOSE/ASNECESSA, A DOSE IF NECESSARY
     Route: 048
  12. INNOVAIR [Concomitant]
     Active Substance: BECLOMETHASONE DIPROPIONATE\FORMOTEROL
     Indication: Asthma
     Dosage: 1 DOSAGE FORM, DAILY, IN THE MORNING
     Route: 048
  13. LEVETIRACETAM [Concomitant]
     Active Substance: LEVETIRACETAM
     Indication: Epilepsy
     Dosage: 750 MILLIGRAM, BID, MORNING AND EVENING
     Route: 048

REACTIONS (2)
  - Hypocalcaemia [Recovering/Resolving]
  - Hypomagnesaemia [Not Recovered/Not Resolved]
